FAERS Safety Report 4837591-2 (Version None)
Quarter: 2005Q4

REPORT INFORMATION
  Report Type: 
  Country: None (occurrence: None)
  Receive Date: 20051024
  Receipt Date: 20050915
  Transmission Date: 20060501
  Serious: No
  Sender: FDA-Public Use
  Company Number: 217131

PATIENT
  Age: 37 Year
  Sex: Female
  Weight: 71.2 kg

DRUGS (3)
  1. XOLAIR [Suspect]
     Indication: ASTHMA
     Dosage: 375 MG, Q2W; SUBCUTANEOUS, SEE IMAGE
     Route: 058
     Dates: start: 20050419, end: 20050801
  2. SINGULAIR [Concomitant]
  3. NASONEX [Concomitant]

REACTIONS (1)
  - RASH [None]
